FAERS Safety Report 8215443-8 (Version None)
Quarter: 2012Q1

REPORT INFORMATION
  Report Type: 
  Country: None (occurrence: None)
  Receive Date: 20120316
  Receipt Date: 20120307
  Transmission Date: 20120608
  Serious: Yes (Other)
  Sender: FDA-Public Use
  Company Number: AR-GENZYME-CERZ-1002430

PATIENT
  Sex: Male
  Weight: 21 kg

DRUGS (1)
  1. CEREZYME [Suspect]
     Indication: GAUCHER'S DISEASE
     Dosage: 60 U/KG, Q2W
     Route: 042
     Dates: start: 20050101

REACTIONS (5)
  - GAUCHER'S DISEASE [None]
  - HEPATOMEGALY [None]
  - SPLENOMEGALY [None]
  - RESPIRATORY TRACT INFECTION [None]
  - RESPIRATORY DISORDER [None]
